FAERS Safety Report 7595793-9 (Version None)
Quarter: 2011Q3

REPORT INFORMATION
  Report Type: 
  Country: None (occurrence: None)
  Receive Date: 20110707
  Receipt Date: 20110623
  Transmission Date: 20111222
  Serious: No
  Sender: FDA-Public Use
  Company Number: US-B.I. PHARMACEUTICALS,INC./RIDGEFIELD-2011-BP-14321BP

PATIENT
  Age: 70 Year
  Sex: Male
  Weight: 98.88 kg

DRUGS (7)
  1. DIOVAN [Concomitant]
     Route: 048
  2. LISINOPRIL [Concomitant]
     Indication: HYPERTENSION
     Dosage: 20 MG
     Route: 048
  3. PRADAXA [Suspect]
     Indication: ATRIAL FIBRILLATION
     Dosage: 300 MG
     Route: 048
     Dates: start: 20101208, end: 20110601
  4. FISH OIL [Concomitant]
     Indication: ANTICOAGULANT THERAPY
     Route: 048
  5. SOTALOL HCL [Concomitant]
     Dosage: 160 MG
     Route: 048
  6. FAMOTIDINE [Concomitant]
     Indication: DYSPEPSIA
     Dosage: 40 MG
     Route: 048
  7. DIGOXIN [Concomitant]
     Dosage: 0.25 RT
     Route: 048

REACTIONS (5)
  - HAEMOPTYSIS [None]
  - HAEMORRHAGE [None]
  - PULMONARY CONGESTION [None]
  - RECTAL HAEMORRHAGE [None]
  - GINGIVAL BLEEDING [None]
